FAERS Safety Report 4348318-5 (Version None)
Quarter: 2004Q2

REPORT INFORMATION
  Report Type: 
  Country: None (occurrence: None)
  Receive Date: 20040427
  Receipt Date: 20040401
  Transmission Date: 20050107
  Serious: Yes (Other)
  Sender: FDA-Public Use
  Company Number: US-GLAXOSMITHKLINE-A0505571A

PATIENT
  Age: 71 Year
  Sex: Male
  Weight: 68.2 kg

DRUGS (3)
  1. AUGMENTIN [Suspect]
     Dosage: 2TAB TWICE PER DAY
     Route: 048
     Dates: start: 20040323, end: 20040324
  2. INDERAL [Concomitant]
  3. FLAGYL [Concomitant]

REACTIONS (10)
  - ABDOMINAL PAIN [None]
  - ABDOMINAL PAIN UPPER [None]
  - BLOOD BILIRUBIN INCREASED [None]
  - CHROMATURIA [None]
  - FAECES DISCOLOURED [None]
  - FATIGUE [None]
  - HEPATITIS [None]
  - JAUNDICE [None]
  - LIVER FUNCTION TEST ABNORMAL [None]
  - NAUSEA [None]
